FAERS Safety Report 8058453-6 (Version None)
Quarter: 2012Q1

REPORT INFORMATION
  Report Type: 
  Country: None (occurrence: None)
  Receive Date: 20120120
  Receipt Date: 20120113
  Transmission Date: 20120608
  Serious: Yes (Other)
  Sender: FDA-Public Use
  Company Number: US-PFIZER INC-2011269917

PATIENT
  Sex: Female
  Weight: 60.771 kg

DRUGS (32)
  1. TOPIRAMATE [Concomitant]
     Dosage: 50 MG, 2X/DAY
  2. RELPAX [Concomitant]
     Indication: MIGRAINE
     Dosage: 40 MG, AS NEEDED
  3. SEROQUEL [Concomitant]
     Dosage: 25 MG, 3 EVERY BEDTIME
  4. VIIBRYD [Concomitant]
     Dosage: 40 MG, 1X/DAY
  5. NADOLOL [Concomitant]
     Dosage: 80 MG, 2 ONCE A DAY AT NOON
  6. NADOLOL [Concomitant]
     Dosage: 80 MG, 2 ONCE A DAY AT LUNCH
  7. ALLEGRA [Concomitant]
     Dosage: 180 MG, 1X/DAY
  8. FLONASE [Concomitant]
     Dosage: 50 UG, 2X/DAY
  9. CLARITIN [Concomitant]
     Dosage: 10 MG, 1X/DAY
  10. LEVOTHROID [Concomitant]
     Dosage: 137 UG, 1X/DAY
  11. LEXAPRO [Concomitant]
     Dosage: 20 MG, 1X/DAY
  12. DICYCLOMINE [Concomitant]
     Dosage: 20 MG, 3X/DAY
  13. LEVOTHYROXINE [Concomitant]
     Dosage: 125 UG, 1X/DAY
  14. DIAZEPAM [Concomitant]
     Dosage: 10MG, 2 EVERY BEDTIME
  15. NEURONTIN [Suspect]
     Indication: FIBROMYALGIA
     Dosage: 800 MG, 4X/DAY
     Route: 048
  16. LYRICA [Suspect]
     Indication: FIBROMYALGIA
     Dosage: UNK
  17. RANITIDINE [Concomitant]
     Dosage: 150 MG, 2X/DAY
  18. GABAPENTIN [Concomitant]
     Dosage: 800 MG, 3X/DAY
  19. GABAPENTIN [Concomitant]
     Dosage: 800 MG, 4X/DAY
  20. BEXTRA [Suspect]
     Dosage: UNK
  21. VAGIFEM [Concomitant]
     Dosage: 10 UG, AS NEEDED
  22. NADOLOL [Concomitant]
     Dosage: 80 MG, 1X/DAY
  23. ADVAIR DISKUS 100/50 [Concomitant]
     Dosage: 100-50 MCG/DOSE MISC, 2X/DAY
  24. ACETAMINOPHEN AND HYDROCODONE BITARTRATE [Concomitant]
     Dosage: 7.5-500 MG, Q4H AS NEEDED
  25. EXTRA STRENGTH TYLENOL [Concomitant]
     Dosage: 500 MG, AS NEEDED
  26. VITAMIN D [Concomitant]
     Dosage: 2000 UNIT CAPS, ONCE A DAY
  27. SUMATRIPTAN SUCCINATE [Concomitant]
     Dosage: 6 MG/0.5 ML SOLN, 90 DAYS, 3 MONTHS SUPPLY
  28. BUPROPION [Concomitant]
     Dosage: 300 MG, 1X/DAY
  29. BUPROPION [Concomitant]
     Dosage: 100 MG, 3X/DAY
  30. BUPROPION [Concomitant]
     Dosage: 100 MG, 4 P O Q D
     Route: 048
  31. DIAZEPAM [Concomitant]
     Dosage: 10 MG, UP TP 5 A DAY
  32. TOPAMAX [Concomitant]
     Dosage: 50 MG, 2X/DAY

REACTIONS (20)
  - ACTIVITIES OF DAILY LIVING IMPAIRED [None]
  - BACK PAIN [None]
  - FIBROMYALGIA [None]
  - CONSTIPATION [None]
  - ANXIETY [None]
  - NECK PAIN [None]
  - MYALGIA [None]
  - OSTEOARTHRITIS [None]
  - PAIN [None]
  - COORDINATION ABNORMAL [None]
  - DEPRESSION [None]
  - MYOSITIS [None]
  - DYSPEPSIA [None]
  - SLEEP DISORDER [None]
  - FATIGUE [None]
  - DIZZINESS [None]
  - HEADACHE [None]
  - NAUSEA [None]
  - DIARRHOEA [None]
  - DRUG INEFFECTIVE [None]
